FAERS Safety Report 10262468 (Version 2)
Quarter: 2014Q3

REPORT INFORMATION
  Report Type: Spontaneous
  Country: BR (occurrence: BR)
  Receive Date: 20140626
  Receipt Date: 20140925
  Transmission Date: 20150326
  Serious: Yes (Disabling, Other)
  Sender: FDA-Public Use
  Company Number: PHHY2014BR078982

PATIENT
  Age: 55 Year
  Sex: Female

DRUGS (2)
  1. CODATEN [Suspect]
     Active Substance: CODEINE PHOSPHATE\DICLOFENAC SODIUM
     Indication: PAIN
     Dosage: 1-2 TABLETS DAILY, EVERY 12 HOURS
     Route: 048
     Dates: start: 2009
  2. CODATEN [Suspect]
     Active Substance: CODEINE PHOSPHATE\DICLOFENAC SODIUM
     Dosage: 1 TABLET DAILY, EVERY 8 HOURS
     Route: 048

REACTIONS (4)
  - Movement disorder [Not Recovered/Not Resolved]
  - Fall [Unknown]
  - Pain [Not Recovered/Not Resolved]
  - Hypokinesia [Not Recovered/Not Resolved]

NARRATIVE: CASE EVENT DATE: 2012
